FAERS Safety Report 10513507 (Version 1)
Quarter: 2014Q4

REPORT INFORMATION
  Report Type: Other
  Country: GB (occurrence: GB)
  Receive Date: 20141013
  Receipt Date: 20141013
  Transmission Date: 20150528
  Serious: Yes (Hospitalization, Other)
  Sender: FDA-Public Use
  Company Number: GB-VERTEX PHARMACEUTICALS-2014-004180

PATIENT
  Age: 18 Year
  Sex: Male
  Weight: 43.75 kg

DRUGS (6)
  1. KALYDECO [Suspect]
     Active Substance: IVACAFTOR
     Indication: CYSTIC FIBROSIS
     Dosage: 150 MG, BID
     Route: 048
     Dates: start: 20130426
  2. FLUCLOXACILLIN [Concomitant]
     Active Substance: FLUCLOXACILLIN
     Indication: PRODUCT USED FOR UNKNOWN INDICATION
     Route: 065
  3. VITAMIN A AND D [Concomitant]
     Active Substance: LANOLIN\PETROLATUM
     Indication: PRODUCT USED FOR UNKNOWN INDICATION
     Route: 065
  4. CREON [Concomitant]
     Active Substance: PANCRELIPASE AMYLASE\PANCRELIPASE LIPASE\PANCRELIPASE PROTEASE
     Indication: PRODUCT USED FOR UNKNOWN INDICATION
     Route: 065
  5. DORNASE ALFA [Concomitant]
     Active Substance: DORNASE ALFA
     Indication: PRODUCT USED FOR UNKNOWN INDICATION
     Route: 065
  6. VITAMIN E [Concomitant]
     Active Substance: .ALPHA.-TOCOPHEROL
     Indication: PRODUCT USED FOR UNKNOWN INDICATION
     Route: 065

REACTIONS (5)
  - Haemoglobin decreased [Recovered/Resolved]
  - Vomiting [Recovering/Resolving]
  - Abdominal pain [Recovered/Resolved]
  - Gastritis [Recovering/Resolving]
  - Melaena [Recovered/Resolved]

NARRATIVE: CASE EVENT DATE: 20140828
